FAERS Safety Report 23271481 (Version 2)
Quarter: 2023Q4

REPORT INFORMATION
  Report Type: Spontaneous
  Country: AR (occurrence: AR)
  Receive Date: 20231207
  Receipt Date: 20231213
  Transmission Date: 20240110
  Serious: Yes (Death, Hospitalization, Other)
  Sender: FDA-Public Use
  Company Number: AR-ABBVIE-5518060

PATIENT

DRUGS (1)
  1. VENETOCLAX [Suspect]
     Active Substance: VENETOCLAX
     Indication: Acute myeloid leukaemia
     Route: 048

REACTIONS (8)
  - Death [Fatal]
  - Pneumonia [Unknown]
  - Red blood cell abnormality [Unknown]
  - Skin infection [Unknown]
  - Bacteraemia [Unknown]
  - Platelet disorder [Unknown]
  - Febrile neutropenia [Unknown]
  - Soft tissue infection [Unknown]
